FAERS Safety Report 9540825 (Version 1)
Quarter: 2013Q3

REPORT INFORMATION
  Report Type: Spontaneous
  Country: US (occurrence: US)
  Receive Date: 20130920
  Receipt Date: 20130920
  Transmission Date: 20140515
  Serious: Yes (Other)
  Sender: FDA-Public Use
  Company Number: PHEH2013US019541

PATIENT
  Sex: Female

DRUGS (10)
  1. AFINITOR [Suspect]
     Indication: BREAST CANCER
     Dosage: 1 DF, DAILY
     Dates: start: 20120728
  2. AROMASIN [Concomitant]
     Indication: BREAST CANCER
     Dosage: UNK
     Dates: start: 20120725
  3. COUMADINE [Concomitant]
  4. FINACEA [Concomitant]
  5. GABAPENTIN [Concomitant]
  6. LOTRISONE [Concomitant]
  7. POTASSIUM CHLORIDE [Concomitant]
  8. TEMAZEPAM [Concomitant]
  9. VICODIN [Concomitant]
  10. ZYRTEC [Concomitant]

REACTIONS (8)
  - Cardiac failure [Unknown]
  - Lip disorder [Unknown]
  - Pleural effusion [Unknown]
  - Oedema [Unknown]
  - Nausea [Unknown]
  - Weight decreased [Unknown]
  - Decreased appetite [Unknown]
  - Metastases to bone [Unknown]
